FAERS Safety Report 17790791 (Version 1)
Quarter: 2020Q2

REPORT INFORMATION
  Report Type: Spontaneous
  Country: US (occurrence: US)
  Receive Date: 20200514
  Receipt Date: 20200514
  Transmission Date: 20200714
  Serious: No
  Sender: FDA-Public Use
  Company Number: None

PATIENT
  Age: 73 Year
  Sex: Female

DRUGS (1)
  1. AUSTEDO [Suspect]
     Active Substance: DEUTETRABENAZINE
     Indication: CHOREA
     Route: 048
     Dates: start: 20200311

REACTIONS (3)
  - Somnolence [None]
  - Sedation complication [None]
  - Therapy interrupted [None]

NARRATIVE: CASE EVENT DATE: 20200320
